FAERS Safety Report 5256751-2 (Version None)
Quarter: 2007Q1

REPORT INFORMATION
  Report Type: 
  Country: None (occurrence: None)
  Receive Date: 20070306
  Receipt Date: 20070222
  Transmission Date: 20070707
  Serious: Yes (Other)
  Sender: FDA-Public Use
  Company Number: JP-PFIZER INC-2007015342

PATIENT
  Age: 81 Year
  Sex: Female

DRUGS (11)
  1. GABAPEN [Suspect]
     Dosage: DAILY DOSE:1200MG
     Route: 048
     Dates: start: 20061201, end: 20070101
  2. HALCION [Concomitant]
     Route: 048
  3. ADALAT [Concomitant]
     Route: 048
  4. VALSARTAN [Concomitant]
     Route: 048
  5. AMLODIPINE [Concomitant]
     Route: 048
  6. PAXIL [Concomitant]
     Route: 048
  7. SERMION [Concomitant]
     Route: 048
  8. GASLON [Concomitant]
     Route: 048
  9. ASPIRIN [Concomitant]
     Route: 048
  10. OMEPRAL [Concomitant]
  11. TEGRETOL [Concomitant]
     Route: 048

REACTIONS (2)
  - DEPRESSED LEVEL OF CONSCIOUSNESS [None]
  - SOMNOLENCE [None]
